FAERS Safety Report 9689536 (Version 1)
Quarter: 2013Q4

REPORT INFORMATION
  Report Type: Report from Study
  Country: FR (occurrence: FR)
  Receive Date: 20131115
  Receipt Date: 20131115
  Transmission Date: 20140711
  Serious: Yes (Hospitalization)
  Sender: FDA-Public Use
  Company Number: FR-ROCHE-1301602

PATIENT
  Sex: Female

DRUGS (11)
  1. PEG-INTERFERON ALFA 2A [Suspect]
     Indication: CHRONIC MYELOID LEUKAEMIA
     Dosage: TRADE NAME :PEGASYS
     Route: 058
  2. IMATINIB [Suspect]
     Indication: CHRONIC MYELOID LEUKAEMIA
     Dosage: 400 MG?TRADE NAME: GLIVEC
     Route: 048
     Dates: start: 20040503
  3. TAREG [Concomitant]
     Indication: HYPERTENSION
     Dosage: 160 MG
     Route: 048
     Dates: start: 20070608
  4. MEDIATENSYL [Concomitant]
     Indication: HYPERTENSION
     Dosage: 40 MG
     Route: 048
     Dates: start: 20051027
  5. NOVONORM [Concomitant]
     Indication: DIABETES MELLITUS
     Dosage: 2 MG
     Route: 048
     Dates: start: 20070608
  6. LEVEMIR [Concomitant]
     Indication: DIABETES MELLITUS
     Dosage: 160 IU
     Route: 058
     Dates: start: 20051027
  7. PLAVIX [Concomitant]
     Indication: THROMBOSIS
     Dosage: 75 MG
     Route: 048
     Dates: start: 20050628
  8. OMEPRAZOLE [Concomitant]
     Indication: GASTROOESOPHAGEAL REFLUX DISEASE
     Dosage: 40 MG
     Route: 048
     Dates: start: 200702
  9. RIVOTRIL [Concomitant]
     Indication: PARAESTHESIA
     Route: 048
     Dates: start: 20060324
  10. LASILIX [Concomitant]
     Indication: OEDEMA
     Dosage: 40 MG
     Route: 048
     Dates: start: 20070608
  11. ATENOLOL [Concomitant]
     Indication: HYPERTENSION
     Dosage: 50 MG
     Route: 048

REACTIONS (5)
  - Diarrhoea [Recovered/Resolved with Sequelae]
  - Vomiting [Recovered/Resolved with Sequelae]
  - Nausea [Recovered/Resolved with Sequelae]
  - Abdominal pain [Recovered/Resolved with Sequelae]
  - Colon adenoma [Unknown]
